FAERS Safety Report 6871580-1 (Version None)
Quarter: 2010Q3

REPORT INFORMATION
  Report Type: 
  Country: None (occurrence: None)
  Receive Date: 20100723
  Receipt Date: 20100713
  Transmission Date: 20110219
  Serious: Yes (Other)
  Sender: FDA-Public Use
  Company Number: US-PFIZER INC-2010088061

PATIENT
  Sex: Female
  Weight: 76.19 kg

DRUGS (9)
  1. DETROL LA [Suspect]
     Indication: HYPERTONIC BLADDER
     Dosage: 2 MG, 1X/DAY
     Route: 048
     Dates: start: 20090101, end: 20100701
  2. DETROL LA [Suspect]
     Dosage: 4 MG, DAILY
     Route: 048
     Dates: start: 20100701, end: 20100701
  3. CYMBALTA [Concomitant]
     Dosage: UNK
  4. SINGULAIR [Concomitant]
     Dosage: 10 MG, UNK
  5. CELEBREX [Concomitant]
     Dosage: 200 MG, UNK
  6. SYMBICORT [Concomitant]
     Indication: ASTHMA
     Dosage: UNK
  7. QUINAPRIL [Concomitant]
     Indication: HYPERTENSION
     Dosage: 10 MG, UNK
  8. ZANTAC [Concomitant]
     Dosage: UNK
  9. LEVOTHYROXINE [Concomitant]
     Dosage: UNK

REACTIONS (3)
  - DEPRESSION [None]
  - INCORRECT DOSE ADMINISTERED [None]
  - NERVOUSNESS [None]
